FAERS Safety Report 12325839 (Version 1)
Quarter: 2016Q2

REPORT INFORMATION
  Report Type: Spontaneous
  Country: US (occurrence: US)
  Receive Date: 20160503
  Receipt Date: 20160503
  Transmission Date: 20160815
  Serious: No
  Sender: FDA-Public Use
  Company Number: US-BAYER-2016-079152

PATIENT
  Age: 66 Year
  Sex: Female
  Weight: 45.35 kg

DRUGS (2)
  1. LOTRIMIN ULTRA ANTIFUNGAL [Suspect]
     Active Substance: BUTENAFINE HYDROCHLORIDE
     Indication: TINEA INFECTION
     Dosage: 1 DF, QD
     Route: 061
     Dates: start: 20160407, end: 201604
  2. LOTRIMIN ULTRA ANTIFUNGAL [Suspect]
     Active Substance: BUTENAFINE HYDROCHLORIDE
     Indication: TINEA INFECTION
     Dosage: 1 DF, QD
     Route: 061
     Dates: start: 201604

REACTIONS (2)
  - Tinea infection [None]
  - Product use issue [None]

NARRATIVE: CASE EVENT DATE: 201604
